FAERS Safety Report 9347703 (Version 1)
Quarter: 2013Q2

REPORT INFORMATION
  Report Type: Spontaneous
  Country: US (occurrence: None)
  Receive Date: 20130611
  Receipt Date: 20130611
  Transmission Date: 20140414
  Serious: Yes (Life-Threatening, Hospitalization)
  Sender: FDA-Public Use
  Company Number: None

PATIENT
  Age: 89 Year
  Sex: Female
  Weight: 65.1 kg

DRUGS (1)
  1. CITALOPRAM 10 MG [Suspect]
     Indication: DEPRESSION

REACTIONS (9)
  - Productive cough [None]
  - Wheezing [None]
  - Crepitations [None]
  - Hyponatraemia [None]
  - Dysphagia [None]
  - Lethargy [None]
  - Hypophagia [None]
  - Pneumonia [None]
  - Inappropriate antidiuretic hormone secretion [None]
